FAERS Safety Report 4499748-2 (Version None)
Quarter: 2004Q4

REPORT INFORMATION
  Report Type: 
  Country: None (occurrence: None)
  Receive Date: 20041108
  Receipt Date: 20041027
  Transmission Date: 20050328
  Serious: Yes (Disabling, Other)
  Sender: FDA-Public Use
  Company Number: 2004084928

PATIENT
  Age: 84 Year
  Sex: Male
  Weight: 81.6475 kg

DRUGS (2)
  1. LIPITOR [Suspect]
     Indication: BLOOD CHOLESTEROL
     Dosage: 10 MG (10 MG, 1 IN 1 D), ORAL
     Route: 048
     Dates: start: 19970101, end: 20040101
  2. LOSARTAN POTASSIUM [Concomitant]

REACTIONS (15)
  - ACCIDENT [None]
  - ACTIVITIES OF DAILY LIVING IMPAIRED [None]
  - BACK DISORDER [None]
  - BLOOD CHOLESTEROL INCREASED [None]
  - BODY HEIGHT DECREASED [None]
  - CAROTID ARTERY OCCLUSION [None]
  - FALL [None]
  - MONOPLEGIA [None]
  - NAIL DISORDER [None]
  - NAIL HYPERTROPHY [None]
  - NEOVASCULARISATION [None]
  - NEUROPATHY PERIPHERAL [None]
  - NO THERAPEUTIC RESPONSE [None]
  - OPERATIVE HAEMORRHAGE [None]
  - PAIN IN EXTREMITY [None]
